FAERS Safety Report 9190977 (Version 1)
Quarter: 2013Q1

REPORT INFORMATION
  Report Type: Spontaneous
  Country: CN (occurrence: CN)
  Receive Date: 20130326
  Receipt Date: 20130326
  Transmission Date: 20140127
  Serious: Yes (Other)
  Sender: FDA-Public Use
  Company Number: CN-PFIZER INC-2013093432

PATIENT
  Age: 65 Year
  Sex: Female

DRUGS (1)
  1. SUTENT [Suspect]
     Indication: GASTROINTESTINAL STROMAL TUMOUR
     Dosage: UNK

REACTIONS (7)
  - Coma [Recovered/Resolved]
  - Diarrhoea [Recovered/Resolved]
  - Hypoglycaemia [Recovered/Resolved]
  - Disease progression [Unknown]
  - Gastrointestinal stromal tumour [Unknown]
  - Decreased appetite [Recovered/Resolved]
  - Skin discolouration [Recovered/Resolved]
